FAERS Safety Report 22283081 (Version 1)
Quarter: 2023Q2

REPORT INFORMATION
  Report Type: Spontaneous
  Country: US (occurrence: US)
  Receive Date: 20230504
  Receipt Date: 20230504
  Transmission Date: 20230721
  Serious: Yes (Death, Other)
  Sender: FDA-Public Use
  Company Number: US-GLENMARK PHARMACEUTICALS-2023GMK081608

PATIENT

DRUGS (3)
  1. SIROLIMUS [Suspect]
     Active Substance: SIROLIMUS
     Indication: Immunosuppressant drug therapy
     Dosage: 0.5 MILLIGRAM, QD
     Route: 065
     Dates: end: 2022
  2. SIROLIMUS [Suspect]
     Active Substance: SIROLIMUS
     Dosage: 0.5 MILLIGRAM, EVERY OTHER DAY
     Route: 065
     Dates: start: 2022, end: 2022
  3. SIROLIMUS [Suspect]
     Active Substance: SIROLIMUS
     Dosage: 0.25 MILLIGRAM, EVERY OTHER DAY
     Route: 065
     Dates: start: 2022

REACTIONS (2)
  - COVID-19 [Fatal]
  - Drug level increased [Unknown]

NARRATIVE: CASE EVENT DATE: 20220101
